FAERS Safety Report 8006135-9 (Version None)
Quarter: 2011Q4

REPORT INFORMATION
  Report Type: 
  Country: None (occurrence: None)
  Receive Date: 20111226
  Receipt Date: 20111213
  Transmission Date: 20120403
  Serious: Yes (Hospitalization)
  Sender: FDA-Public Use
  Company Number: FR-ELI_LILLY_AND_COMPANY-FR201104003713

PATIENT
  Age: 25 Year
  Sex: Male

DRUGS (2)
  1. ZYPREXA [Suspect]
     Indication: BRIEF PSYCHOTIC DISORDER WITH MARKED STRESSORS
     Dosage: 1 DF, QD
     Route: 048
     Dates: start: 20050101, end: 20110101
  2. MIRTAZAPINE [Concomitant]
     Dosage: 1 DF, QD
     Route: 048
     Dates: start: 20050101, end: 20110101

REACTIONS (2)
  - PROTEIN S DECREASED [None]
  - PULMONARY EMBOLISM [None]
